FAERS Safety Report 8372123-6 (Version None)
Quarter: 2012Q2

REPORT INFORMATION
  Report Type: 
  Country: None (occurrence: None)
  Receive Date: 20120521
  Receipt Date: 20120516
  Transmission Date: 20120825
  Serious: Yes (Hospitalization, Other)
  Sender: FDA-Public Use
  Company Number: FR-AMGEN-FRASP2012030335

PATIENT
  Sex: Male
  Weight: 80 kg

DRUGS (3)
  1. NEULASTA [Suspect]
     Indication: NEUTROPENIA
  2. CISPLATIN [Concomitant]
     Indication: SMALL CELL LUNG CANCER STAGE UNSPECIFIED
  3. ETOPOSIDE [Concomitant]
     Indication: SMALL CELL LUNG CANCER STAGE UNSPECIFIED

REACTIONS (4)
  - HYPERSENSITIVITY [None]
  - APLASTIC ANAEMIA [None]
  - HYPOTENSION [None]
  - MALAISE [None]
